FAERS Safety Report 8525477-1 (Version None)
Quarter: 2012Q3

REPORT INFORMATION
  Report Type: 
  Country: None (occurrence: None)
  Receive Date: 20120720
  Receipt Date: 20120713
  Transmission Date: 20120928
  Serious: Yes (Other)
  Sender: FDA-Public Use
  Company Number: CA-JNJFOC-20120515385

PATIENT
  Sex: Male
  Weight: 82.7 kg

DRUGS (4)
  1. ANTIBIOTICS [Concomitant]
     Route: 065
  2. REMICADE [Suspect]
     Indication: CROHN'S DISEASE
     Route: 042
     Dates: start: 20050503
  3. IMURAN [Concomitant]
     Route: 048
  4. FLAGYL [Concomitant]
     Route: 048

REACTIONS (1)
  - FISTULA [None]
